FAERS Safety Report 19236459 (Version 1)
Quarter: 2021Q2

REPORT INFORMATION
  Report Type: Spontaneous
  Country: NZ (occurrence: NZ)
  Receive Date: 20210510
  Receipt Date: 20210510
  Transmission Date: 20210717
  Serious: Yes (Hospitalization, Other)
  Sender: FDA-Public Use
  Company Number: NZ-LUPIN PHARMACEUTICALS INC.-2021-06338

PATIENT
  Age: 67 Year
  Sex: Male

DRUGS (4)
  1. TRIAMCINOLONE ACETONIDE. [Suspect]
     Active Substance: TRIAMCINOLONE ACETONIDE
     Indication: CYSTOID MACULAR OEDEMA
  2. TRIAMCINOLONE ACETONIDE. [Suspect]
     Active Substance: TRIAMCINOLONE ACETONIDE
     Indication: RETINAL VEIN OCCLUSION
     Dosage: UNK (INJECTION)
  3. PREDNISONE. [Suspect]
     Active Substance: PREDNISONE
     Indication: ENCEPHALITIS AUTOIMMUNE
     Dosage: UNK
     Route: 065
  4. AZATHIOPRINE. [Suspect]
     Active Substance: AZATHIOPRINE
     Indication: ENCEPHALITIS AUTOIMMUNE
     Dosage: UNK
     Route: 065

REACTIONS (3)
  - Cytomegalovirus chorioretinitis [Recovered/Resolved]
  - Infective uveitis [Recovered/Resolved]
  - Rhegmatogenous retinal detachment [Recovered/Resolved]
